FAERS Safety Report 4608191-4 (Version None)
Quarter: 2005Q2

REPORT INFORMATION
  Report Type: 
  Country: None (occurrence: None)
  Receive Date: 20050303
  Receipt Date: 20041112
  Transmission Date: 20051028
  Serious: No
  Sender: FDA-Public Use
  Company Number: 702351

PATIENT
  Age: 53 Year
  Sex: Female

DRUGS (4)
  1. AMEVIVE [Suspect]
     Indication: PSORIASIS
     Dosage: 15 MG;QW;IM, 15 MG;QW;IM
     Route: 030
     Dates: start: 20040819, end: 20041013
  2. AMEVIVE [Suspect]
     Indication: PSORIASIS
     Dosage: 15 MG;QW;IM, 15 MG;QW;IM
     Route: 030
     Dates: start: 20040101
  3. LIPITOR [Concomitant]
  4. PREMPRO [Concomitant]

REACTIONS (3)
  - JOINT STIFFNESS [None]
  - JOINT SWELLING [None]
  - TONGUE ULCERATION [None]
